FAERS Safety Report 13528952 (Version 1)
Quarter: 2017Q2

REPORT INFORMATION
  Report Type: Report from Study
  Country: US (occurrence: US)
  Receive Date: 20170509
  Receipt Date: 20170509
  Transmission Date: 20170830
  Serious: Yes (Other)
  Sender: FDA-Public Use
  Company Number: GXBR2017US001592

PATIENT
  Age: 14 Year
  Sex: Male

DRUGS (2)
  1. OMNITROPE [Suspect]
     Active Substance: SOMATROPIN
     Dosage: 2.0 MG, QD
     Route: 058
     Dates: start: 201703, end: 201704
  2. OMNITROPE [Suspect]
     Active Substance: SOMATROPIN
     Indication: HYPOPITUITARISM
     Dosage: 2.7 MG, QD
     Route: 058
     Dates: start: 201608, end: 201703

REACTIONS (11)
  - Nausea [Recovered/Resolved]
  - Educational problem [Unknown]
  - Injection site rash [Recovered/Resolved]
  - Hand fracture [Recovered/Resolved]
  - Vomiting [Recovered/Resolved]
  - Headache [Recovered/Resolved]
  - Visual impairment [Not Recovered/Not Resolved]
  - Influenza [Recovered/Resolved]
  - Astigmatism [Not Recovered/Not Resolved]
  - Foot fracture [Recovering/Resolving]
  - Blood growth hormone increased [Not Recovered/Not Resolved]

NARRATIVE: CASE EVENT DATE: 201701
